FAERS Safety Report 8541169-7 (Version None)
Quarter: 2012Q3

REPORT INFORMATION
  Report Type: 
  Country: None (occurrence: None)
  Receive Date: 20120726
  Receipt Date: 20120716
  Transmission Date: 20120928
  Serious: Yes (Hospitalization)
  Sender: FDA-Public Use
  Company Number: US-ACTELION-A-NJ2012-67872

PATIENT

DRUGS (3)
  1. TYVASO [Concomitant]
  2. IRON [Concomitant]
  3. TRACLEER [Suspect]
     Indication: PULMONARY ARTERIAL HYPERTENSION
     Dosage: UNK
     Route: 048
     Dates: start: 20090108

REACTIONS (6)
  - CONNECTIVE TISSUE DISORDER [None]
  - ABDOMINAL DISTENSION [None]
  - RENAL FAILURE [None]
  - HAEMOGLOBIN DECREASED [None]
  - DECREASED APPETITE [None]
  - CONDITION AGGRAVATED [None]
